FAERS Safety Report 5119784-2 (Version None)
Quarter: 2006Q4

REPORT INFORMATION
  Report Type: 
  Country: None (occurrence: None)
  Receive Date: 20061003
  Receipt Date: 20060920
  Transmission Date: 20070319
  Serious: Yes (Hospitalization)
  Sender: FDA-Public Use
  Company Number: PHBS2006IL14592

PATIENT
  Age: 68 Year
  Sex: Male

DRUGS (5)
  1. CYCLOSPORINE [Suspect]
     Indication: RENAL TRANSPLANT
     Route: 065
  2. PREDNISONE [Concomitant]
     Indication: RENAL TRANSPLANT
     Route: 065
  3. LEVOFLOXACIN (NGX) [Suspect]
     Indication: PNEUMONIA
     Dosage: 250 MG/D
     Route: 048
  4. COLCHICINE [Suspect]
     Indication: GOUTY ARTHRITIS
  5. SIMVASTATIN (NGX) [Suspect]
     Dosage: 40 MG/D

REACTIONS (6)
  - BLOOD CREATINE PHOSPHOKINASE INCREASED [None]
  - DRUG INTERACTION [None]
  - GAIT DISTURBANCE [None]
  - MYALGIA [None]
  - MYOGLOBINURIA [None]
  - RHABDOMYOLYSIS [None]
